FAERS Safety Report 4986478-3 (Version None)
Quarter: 2006Q2

REPORT INFORMATION
  Report Type: 
  Country: None (occurrence: None)
  Receive Date: 20060428
  Receipt Date: 20060419
  Transmission Date: 20061013
  Serious: Yes (Death, Hospitalization)
  Sender: FDA-Public Use
  Company Number: BE-ROCHE-444913

PATIENT
  Age: 46 Year
  Sex: Female
  Weight: 54 kg

DRUGS (6)
  1. PEGASYS [Suspect]
     Indication: HEPATITIS C
     Route: 058
     Dates: start: 20060113
  2. COPEGUS [Suspect]
     Indication: HEPATITIS C
     Route: 048
     Dates: start: 20060113
  3. SIPRALEXA [Concomitant]
     Indication: DRUG THERAPY
  4. TRAZODONE HCL [Concomitant]
     Dosage: NOT READABLE NAME.
  5. METHADON [Concomitant]
  6. PRAZEPAM [Concomitant]

REACTIONS (6)
  - ABDOMINAL PAIN [None]
  - AIR EMBOLISM [None]
  - CARDIAC ARREST [None]
  - COMPLETED SUICIDE [None]
  - HAEMOGLOBIN DECREASED [None]
  - PANIC ATTACK [None]
